FAERS Safety Report 5874645-6 (Version None)
Quarter: 2008Q3

REPORT INFORMATION
  Report Type: 
  Country: None (occurrence: None)
  Receive Date: 20080903
  Receipt Date: 20080821
  Transmission Date: 20090109
  Serious: Yes (Life-Threatening, Other)
  Sender: FDA-Public Use
  Company Number: FABR-1000129

PATIENT
  Age: 45 Year
  Sex: Male
  Weight: 50 kg

DRUGS (2)
  1. FABRAZYME [Suspect]
     Indication: FABRY'S DISEASE
     Dosage: 54 MG, INTRAVENOUS 0.5 MG/KG, INTRAVENOUS
     Route: 042
     Dates: start: 20080221, end: 20080306
  2. FABRAZYME [Suspect]
     Indication: FABRY'S DISEASE
     Dosage: 54 MG, INTRAVENOUS 0.5 MG/KG, INTRAVENOUS
     Route: 042
     Dates: end: 20080722

REACTIONS (15)
  - ANAPHYLACTIC REACTION [None]
  - CHILLS [None]
  - DYSPNOEA [None]
  - HYPERTENSION [None]
  - HYPOGLYCAEMIA [None]
  - HYPOTENSION [None]
  - HYPOXIA [None]
  - LIVEDO RETICULARIS [None]
  - NAUSEA [None]
  - PALLOR [None]
  - PERIPHERAL COLDNESS [None]
  - PYREXIA [None]
  - SHOCK [None]
  - TACHYCARDIA [None]
  - VOMITING [None]
